FAERS Safety Report 8202489-9 (Version None)
Quarter: 2012Q1

REPORT INFORMATION
  Report Type: 
  Country: None (occurrence: None)
  Receive Date: 20120312
  Receipt Date: 20120301
  Transmission Date: 20120608
  Serious: Yes (Other)
  Sender: FDA-Public Use
  Company Number: BR-SHIRE-ALL1-2012-01309

PATIENT
  Sex: Female

DRUGS (2)
  1. MESALAMINE [Suspect]
     Indication: COLITIS
     Dosage: 1200 MG, 2X/DAY:BID(2 TABLETS DAILY)
     Route: 048
     Dates: start: 20120219, end: 20120222
  2. PANTOPRAZOLE [Concomitant]
     Indication: PRODUCT USED FOR UNKNOWN INDICATION
     Dosage: 40 MG, 1X/DAY:QD
     Route: 065
     Dates: start: 20111201

REACTIONS (6)
  - DELIRIUM [None]
  - INSOMNIA [None]
  - URINARY TRACT INFECTION [None]
  - NECK PAIN [None]
  - DRY THROAT [None]
  - SWELLING [None]
